FAERS Safety Report 15602968 (Version 1)
Quarter: 2018Q4

REPORT INFORMATION
  Report Type: Spontaneous
  Country: US (occurrence: US)
  Receive Date: 20181109
  Receipt Date: 20181109
  Transmission Date: 20190205
  Serious: Yes (Death)
  Sender: FDA-Public Use
  Company Number: US-TAIHO ONCOLOGY  INC-EU-2018-01748

PATIENT
  Age: 49 Year
  Sex: Female
  Weight: 52.39 kg

DRUGS (1)
  1. LONSURF [Suspect]
     Active Substance: TIPIRACIL HYDROCHLORIDE\TRIFLURIDINE
     Indication: COLON CANCER
     Dosage: CYCLE 2 STARTED ON 12OCT2018
     Route: 048
     Dates: start: 20180924, end: 2018

REACTIONS (6)
  - Pain [Unknown]
  - Asthenia [Unknown]
  - Fatigue [Unknown]
  - Death [Fatal]
  - Influenza like illness [Unknown]
  - Oropharyngeal pain [Unknown]

NARRATIVE: CASE EVENT DATE: 2018
